FAERS Safety Report 4681970-3 (Version None)
Quarter: 2005Q2

REPORT INFORMATION
  Report Type: 
  Country: None (occurrence: None)
  Receive Date: 20050606
  Receipt Date: 20050523
  Transmission Date: 20051028
  Serious: Yes (Other)
  Sender: FDA-Public Use
  Company Number: PHEH2005US05831

PATIENT
  Age: 48 Year
  Sex: Female

DRUGS (4)
  1. AREDIA [Suspect]
     Indication: BREAST CANCER
  2. TAMOXIFEN [Concomitant]
     Indication: BREAST CANCER
  3. VITAMINS [Concomitant]
  4. HERBAL PREPARATION [Concomitant]

REACTIONS (9)
  - ACTINOMYCOSIS [None]
  - BONE DISORDER [None]
  - BONE OPERATION [None]
  - FISTULA [None]
  - IMPAIRED HEALING [None]
  - PERIODONTAL OPERATION [None]
  - PRIMARY SEQUESTRUM [None]
  - SEQUESTRECTOMY [None]
  - SWELLING [None]
